FAERS Safety Report 14524564 (Version 2)
Quarter: 2018Q2

REPORT INFORMATION
  Report Type: Spontaneous
  Country: DE (occurrence: DE)
  Receive Date: 20180213
  Receipt Date: 20180518
  Transmission Date: 20180711
  Serious: Yes (Hospitalization, Other)
  Sender: FDA-Public Use
  Company Number: DE-WEST-WARD PHARMACEUTICALS CORP.-DE-H14001-18-00814

PATIENT
  Age: 25 Year
  Sex: Female
  Weight: 70 kg

DRUGS (6)
  1. LEMTRADA [Suspect]
     Active Substance: ALEMTUZUMAB
     Indication: MULTIPLE SCLEROSIS
     Route: 041
     Dates: start: 201603, end: 201603
  2. LEMTRADA [Suspect]
     Active Substance: ALEMTUZUMAB
     Route: 041
     Dates: start: 20150603, end: 20150607
  3. METHYLPREDNISOLONE. [Suspect]
     Active Substance: METHYLPREDNISOLONE
     Indication: PRODUCT USED FOR UNKNOWN INDICATION
     Route: 065
     Dates: start: 201608
  4. VIGANTOL [Concomitant]
     Active Substance: CHOLECALCIFEROL
     Indication: MULTIPLE SCLEROSIS
     Route: 048
  5. SATIVEX [Concomitant]
     Active Substance: NABIXIMOLS
     Indication: MULTIPLE SCLEROSIS
     Route: 048
     Dates: end: 201609
  6. METHYLPREDNISOLONE. [Suspect]
     Active Substance: METHYLPREDNISOLONE
     Route: 065
     Dates: start: 201604, end: 201604

REACTIONS (24)
  - B-lymphocyte count increased [Unknown]
  - Cystitis [Recovering/Resolving]
  - Nasopharyngitis [Unknown]
  - Palpitations [Unknown]
  - Epistaxis [Not Recovered/Not Resolved]
  - Multiple sclerosis relapse [Not Recovered/Not Resolved]
  - Hyperthyroidism [Unknown]
  - Gingival bleeding [Recovering/Resolving]
  - Haematoma [Unknown]
  - Lymphocyte percentage decreased [Unknown]
  - Hiccups [Unknown]
  - Arrhythmia [Not Recovered/Not Resolved]
  - Rash erythematous [Recovered/Resolved]
  - Alopecia [Unknown]
  - Haemoptysis [Unknown]
  - Natural killer cell count increased [Unknown]
  - Temperature intolerance [Unknown]
  - Limb immobilisation [Recovered/Resolved]
  - Cerebrovascular accident [Unknown]
  - Prothrombin time prolonged [Not Recovered/Not Resolved]
  - Vomiting [Unknown]
  - Frequent bowel movements [Unknown]
  - Emotional disorder [Unknown]
  - Cough [Unknown]

NARRATIVE: CASE EVENT DATE: 2016
